FAERS Safety Report 9725695 (Version 1)
Quarter: 2013Q4

REPORT INFORMATION
  Report Type: Spontaneous
  Country: US (occurrence: None)
  Receive Date: 20131202
  Receipt Date: 20131202
  Transmission Date: 20140711
  Serious: Yes (Disabling)
  Sender: FDA-Public Use
  Company Number: None

PATIENT
  Sex: Male

DRUGS (5)
  1. SYMBICORT [Suspect]
     Indication: ASTHMA
     Dosage: 2 PUFFS TWICE DAILY
     Dates: start: 20120928, end: 20121126
  2. VIT. C [Concomitant]
  3. CA ++ [Concomitant]
  4. YEAST [Concomitant]
  5. CRILL CAPS [Concomitant]

REACTIONS (3)
  - Arthralgia [None]
  - Muscle disorder [None]
  - Activities of daily living impaired [None]
